FAERS Safety Report 6152778-7 (Version None)
Quarter: 2009Q2

REPORT INFORMATION
  Report Type: 
  Country: None (occurrence: None)
  Receive Date: 20090409
  Receipt Date: 20090326
  Transmission Date: 20091009
  Serious: Yes (Hospitalization, Other)
  Sender: FDA-Public Use
  Company Number: 2009-190569-NL

PATIENT
  Age: 32 Year
  Sex: Female
  Weight: 107 kg

DRUGS (7)
  1. IMPLANON [Suspect]
     Indication: CONTRACEPTION
  2. IMPLANON [Suspect]
     Indication: CONTRACEPTION
  3. IMPLANON [Suspect]
     Indication: CONTRACEPTION
  4. IMPLANON [Suspect]
     Indication: CONTRACEPTION
     Dates: start: 20090122, end: 20090126
  5. IMPLANON [Suspect]
     Indication: CONTRACEPTION
     Dates: start: 20090126, end: 20090128
  6. IMPLANON [Suspect]
     Indication: CONTRACEPTION
  7. IMPLANON [Concomitant]

REACTIONS (8)
  - EMBOLISM [None]
  - ERYTHEMA [None]
  - FEELING COLD [None]
  - IMPLANT SITE ERYTHEMA [None]
  - IMPLANT SITE HYPERSENSITIVITY [None]
  - IMPLANT SITE PRURITUS [None]
  - OEDEMA PERIPHERAL [None]
  - PERIPHERAL ISCHAEMIA [None]
